FAERS Safety Report 25627953 (Version 1)
Quarter: 2025Q3

REPORT INFORMATION
  Report Type: Spontaneous
  Country: JP (occurrence: JP)
  Receive Date: 20250731
  Receipt Date: 20250731
  Transmission Date: 20251021
  Serious: Yes (Hospitalization, Other)
  Sender: OTSUKA
  Company Number: JP-MMM-Otsuka-NLYQ2T07

PATIENT
  Age: 9 Decade
  Sex: Male

DRUGS (4)
  1. SAMSCA [Suspect]
     Active Substance: TOLVAPTAN
     Indication: Cardiac failure
     Route: 048
  2. SAMSCA [Suspect]
     Active Substance: TOLVAPTAN
     Route: 048
  3. SAMSCA [Suspect]
     Active Substance: TOLVAPTAN
     Route: 048
  4. SAMSCA [Suspect]
     Active Substance: TOLVAPTAN
     Route: 048

REACTIONS (1)
  - Cardiac failure [Recovered/Resolved]
